FAERS Safety Report 24297677 (Version 1)
Quarter: 2024Q3

REPORT INFORMATION
  Report Type: Spontaneous
  Country: US (occurrence: None)
  Receive Date: 20240906
  Receipt Date: 20240906
  Transmission Date: 20241016
  Serious: Yes (Disabling)
  Sender: Public
  Company Number: None

PATIENT
  Age: 85 Year
  Sex: Male
  Weight: 76.5 kg

DRUGS (12)
  1. BRUKINSA [Suspect]
     Active Substance: ZANUBRUTINIB
     Indication: Leukaemia
     Dosage: 2 CAPSULES TWICE A DAY ORAL
     Route: 048
     Dates: start: 20240821, end: 20240904
  2. ELIQUIS [Concomitant]
     Active Substance: APIXABAN
  3. isosoribe mononitrate [Concomitant]
  4. LISINOPRIL [Concomitant]
     Active Substance: LISINOPRIL
  5. PRAVASTATIN [Concomitant]
     Active Substance: PRAVASTATIN
  6. FINASTERIDE [Concomitant]
     Active Substance: FINASTERIDE
  7. fluoromethone [Concomitant]
  8. ECONAZOLE NITRATE [Concomitant]
     Active Substance: ECONAZOLE NITRATE
  9. PANTOPRAZOLE [Concomitant]
     Active Substance: PANTOPRAZOLE
  10. MINERALS\VITAMINS [Concomitant]
     Active Substance: MINERALS\VITAMINS
  11. MINERALS\VITAMINS [Concomitant]
     Active Substance: MINERALS\VITAMINS
  12. CULTURELLE [Concomitant]
     Active Substance: LACTOBACILLUS RHAMNOSUS

REACTIONS (1)
  - Cellulitis [None]

NARRATIVE: CASE EVENT DATE: 20240903
